FAERS Safety Report 18597346 (Version 1)
Quarter: 2020Q4

REPORT INFORMATION
  Report Type: Spontaneous
  Country: US (occurrence: US)
  Receive Date: 20201209
  Receipt Date: 20201209
  Transmission Date: 20210114
  Serious: No
  Sender: FDA-Public Use
  Company Number: US-IBSA PHARMA INC.-2019IBS000183

PATIENT
  Age: 51 Year
  Sex: Female

DRUGS (10)
  1. TIROSINT [Suspect]
     Active Substance: LEVOTHYROXINE SODIUM
     Indication: HYPOTHYROIDISM
     Dosage: 100MCG AND 112MCG ALTERNATING THROUGH THE WEEK
     Route: 048
     Dates: start: 2019, end: 2019
  2. TIROSINT [Suspect]
     Active Substance: LEVOTHYROXINE SODIUM
     Indication: THYROIDECTOMY
  3. TIROSINT [Suspect]
     Active Substance: LEVOTHYROXINE SODIUM
     Indication: THYROIDECTOMY
     Dosage: 125MCG FOR 1 OR 2 DAYS AND 100MCG THE REST OF THE WEEK
     Route: 048
     Dates: start: 2019, end: 2019
  4. TIROSINT [Suspect]
     Active Substance: LEVOTHYROXINE SODIUM
     Dosage: 100MCG AND ONE HALF OF A 13MCG CAPSULE DAILY
     Route: 048
     Dates: start: 2019, end: 201911
  5. TIROSINT [Suspect]
     Active Substance: LEVOTHYROXINE SODIUM
     Indication: THYROIDECTOMY
  6. TIROSINT [Suspect]
     Active Substance: LEVOTHYROXINE SODIUM
     Indication: HYPOTHYROIDISM
     Dosage: 100MCG DAILY
     Route: 048
     Dates: end: 2019
  7. TIROSINT [Suspect]
     Active Substance: LEVOTHYROXINE SODIUM
     Dosage: 100MCG AND 112MCG ALTERNATING THROUGH THE WEEK
     Route: 048
     Dates: start: 2019, end: 2019
  8. TIROSINT [Suspect]
     Active Substance: LEVOTHYROXINE SODIUM
     Indication: HYPOTHYROIDISM
     Dosage: 125MCG FOR 1 OR 2 DAYS AND 100MCG THE REST OF THE WEEK
     Route: 048
     Dates: start: 2019, end: 2019
  9. TIROSINT [Suspect]
     Active Substance: LEVOTHYROXINE SODIUM
     Indication: THYROIDECTOMY
  10. TIROSINT [Suspect]
     Active Substance: LEVOTHYROXINE SODIUM
     Indication: HYPOTHYROIDISM
     Dosage: 100MCG AND ONE HALF OF A 13MCG CAPSULE DAILY
     Route: 048
     Dates: start: 2019, end: 201911

REACTIONS (8)
  - Thyroid mass [Unknown]
  - Feeling abnormal [Unknown]
  - Drug level below therapeutic [Unknown]
  - Blood thyroid stimulating hormone increased [Unknown]
  - Drug level above therapeutic [Unknown]
  - Wrong technique in product usage process [Unknown]
  - Blood thyroid stimulating hormone decreased [Unknown]
  - Palpitations [Unknown]

NARRATIVE: CASE EVENT DATE: 2019
